FAERS Safety Report 24683386 (Version 1)
Quarter: 2024Q4

REPORT INFORMATION
  Report Type: Spontaneous
  Country: US (occurrence: US)
  Receive Date: 20241201
  Receipt Date: 20241201
  Transmission Date: 20250115
  Serious: No
  Sender: BIOGEN
  Company Number: US-BIOGEN-2024BI01282670

PATIENT
  Age: 15 Year
  Sex: Male

DRUGS (2)
  1. SKYCLARYS [Suspect]
     Active Substance: OMAVELOXOLONE
     Indication: Friedreich^s ataxia
     Route: 050
     Dates: start: 20240821, end: 202410
  2. SKYCLARYS [Suspect]
     Active Substance: OMAVELOXOLONE
     Dosage: 2 CAPSULES DAILY FOR 2 WEEKS
     Route: 050

REACTIONS (6)
  - Back disorder [Unknown]
  - Drug ineffective [Unknown]
  - Muscle spasms [Unknown]
  - Drug intolerance [Recovered/Resolved]
  - Speech disorder [Recovered/Resolved]
  - Fine motor skill dysfunction [Recovered/Resolved]

NARRATIVE: CASE EVENT DATE: 20240801
